FAERS Safety Report 9210705 (Version 1)
Quarter: 2013Q2

REPORT INFORMATION
  Report Type: Spontaneous
  Country: ES (occurrence: ES)
  Receive Date: 20130404
  Receipt Date: 20130404
  Transmission Date: 20140414
  Serious: Yes (Other)
  Sender: FDA-Public Use
  Company Number: ES-JNJFOC-20130317007

PATIENT
  Age: 57 Year
  Sex: Female

DRUGS (1)
  1. XEPLION [Suspect]
     Indication: OBSESSIVE-COMPULSIVE DISORDER
     Route: 030
     Dates: start: 20120918, end: 20130117

REACTIONS (2)
  - Dermatitis bullous [Not Recovered/Not Resolved]
  - Off label use [Recovered/Resolved]
